FAERS Safety Report 9171082 (Version 2)
Quarter: 2013Q3

REPORT INFORMATION
  Report Type: Report from Study
  Country: NL (occurrence: NL)
  Receive Date: 20130319
  Receipt Date: 20130722
  Transmission Date: 20140515
  Serious: Yes (Other)
  Sender: FDA-Public Use
  Company Number: PHHY2013NL025939

PATIENT
  Age: 74 Year
  Sex: Female

DRUGS (9)
  1. ACLASTA [Suspect]
     Indication: OSTEOPOROSIS
     Dosage: 5 MG, UNK
     Route: 042
     Dates: start: 201102
  2. ACLASTA [Suspect]
     Dosage: 5 MG, UNK
     Route: 042
     Dates: start: 20120313
  3. ACLASTA [Suspect]
     Dosage: 5 MG, UNK
     Route: 042
     Dates: start: 20130315
  4. METHOTREXATE [Concomitant]
     Dosage: 4 TABLETS ONCE WEEKLY
  5. CALCI CHEW [Concomitant]
     Dosage: 500MG/400 IU TWICE A DAY
  6. CALCI CHEW [Concomitant]
     Dosage: 100/800 U 1DD1
  7. FOLIC ACID [Concomitant]
     Dosage: 1 TABLET ONCE WEEKLY
  8. NAPROXEN [Concomitant]
     Dosage: 500 MG AS NECESSARY TWICE A DAY
  9. OMEPRAZOLE [Concomitant]
     Dosage: UNK

REACTIONS (2)
  - Fall [Unknown]
  - Fracture [Unknown]
